FAERS Safety Report 4554401-1 (Version None)
Quarter: 2005Q1

REPORT INFORMATION
  Report Type: 
  Country: None (occurrence: None)
  Receive Date: 20050118
  Receipt Date: 20050106
  Transmission Date: 20050727
  Serious: Yes (Other)
  Sender: FDA-Public Use
  Company Number: JP-BRISTOL-MYERS SQUIBB COMPANY-12822813

PATIENT
  Age: 37 Year
  Sex: Male

DRUGS (1)
  1. GATIFLO TABS [Suspect]
     Indication: PROSTATITIS
     Route: 048
     Dates: start: 20041203, end: 20041209

REACTIONS (2)
  - DIABETES MELLITUS [None]
  - LIVER DISORDER [None]
